FAERS Safety Report 14489792 (Version 1)
Quarter: 2018Q1

REPORT INFORMATION
  Report Type: Spontaneous
  Country: FR (occurrence: FR)
  Receive Date: 20180206
  Receipt Date: 20180206
  Transmission Date: 20180509
  Serious: Yes (Other)
  Sender: FDA-Public Use
  Company Number: FR-009507513-1802FRA000557

PATIENT
  Sex: Male

DRUGS (1)
  1. PROPECIA [Suspect]
     Active Substance: FINASTERIDE
     Indication: ALOPECIA
     Dosage: UNK

REACTIONS (5)
  - Anhedonia [Unknown]
  - Genital pain [Unknown]
  - Balance disorder [Unknown]
  - Disturbance in attention [Unknown]
  - Suicidal ideation [Unknown]
